FAERS Safety Report 16872801 (Version 2)
Quarter: 2019Q4

REPORT INFORMATION
  Report Type: Spontaneous
  Country: GB (occurrence: GB)
  Receive Date: 20191001
  Receipt Date: 20191203
  Transmission Date: 20200122
  Serious: Yes (Other)
  Sender: FDA-Public Use
  Company Number: GB-MYLANLABS-2019M1077258

PATIENT
  Age: 67 Year
  Sex: Male
  Weight: 72.7 kg

DRUGS (1)
  1. SIRDUPLA 25 MICROGRAM/125 MICROGRAM [Suspect]
     Active Substance: FLUTICASONE PROPIONATE\SALMETEROL XINAFOATE
     Indication: ASTHMA
     Dosage: 1 PUFF, IN MORNING AND 1 PUFF, IN AFTERNOON
     Dates: start: 20190805, end: 20190911

REACTIONS (7)
  - Cardiac murmur [Recovered/Resolved]
  - Aggression [Recovered/Resolved]
  - Depression [Unknown]
  - Amnesia [Unknown]
  - Anger [Recovered/Resolved]
  - Muscle spasms [Recovered/Resolved]
  - Asthma [Recovered/Resolved]

NARRATIVE: CASE EVENT DATE: 2019
